FAERS Safety Report 6912366-9 (Version None)
Quarter: 2010Q3

REPORT INFORMATION
  Report Type: 
  Country: None (occurrence: None)
  Receive Date: 20100806
  Receipt Date: 20080606
  Transmission Date: 20110219
  Serious: No
  Sender: FDA-Public Use
  Company Number: US-PFIZER INC-2008036121

PATIENT
  Sex: Female
  Weight: 76.363 kg

DRUGS (12)
  1. DETROL LA [Suspect]
     Indication: HYPERTONIC BLADDER
     Dates: start: 20080101
  2. NABUMETONE [Concomitant]
  3. HYDROXYCHLOROQUINE [Concomitant]
  4. COREG [Concomitant]
  5. FLONASE [Concomitant]
  6. LEXAPRO [Concomitant]
  7. FUROSEMIDE [Concomitant]
  8. CHONDROITIN/GLUCOSAMINE [Concomitant]
  9. ACETYLSALICYLIC ACID SRT [Concomitant]
  10. FISH OIL [Concomitant]
  11. CALCIUM [Concomitant]
  12. VITAMIN D [Concomitant]

REACTIONS (1)
  - CONSTIPATION [None]
